FAERS Safety Report 7437377-9 (Version None)
Quarter: 2011Q2

REPORT INFORMATION
  Report Type: 
  Country: None (occurrence: None)
  Receive Date: 20110426
  Receipt Date: 20110421
  Transmission Date: 20111010
  Serious: Yes (Death, Other)
  Sender: FDA-Public Use
  Company Number: PHHY2011EC34316

PATIENT
  Age: 72 Year
  Sex: Male

DRUGS (3)
  1. DIOVAN [Suspect]
     Indication: HYPERTENSION
     Dosage: 80 MG, DAILY
     Route: 048
  2. GLUCOSAMINE [Concomitant]
     Indication: ARTHRITIS
     Route: 048
  3. OMEPRAZOLE [Concomitant]
     Indication: ULCER
     Route: 048

REACTIONS (3)
  - PERFORATED ULCER [None]
  - DYSPHAGIA [None]
  - MYOCARDIAL INFARCTION [None]
